FAERS Safety Report 10519985 (Version 1)
Quarter: 2014Q4

REPORT INFORMATION
  Report Type: Spontaneous
  Country: CO (occurrence: CO)
  Receive Date: 20141015
  Receipt Date: 20141015
  Transmission Date: 20150528
  Serious: Yes (Hospitalization, Other)
  Sender: FDA-Public Use
  Company Number: CO-PFIZER INC-2014283217

PATIENT
  Age: 10 Year
  Sex: Female
  Weight: 20 kg

DRUGS (1)
  1. GENOTROPIN [Suspect]
     Active Substance: SOMATROPIN
     Indication: GROWTH HORMONE DEFICIENCY
     Dosage: 0.75 MG, DAILY
     Route: 058
     Dates: start: 201408

REACTIONS (6)
  - Blood glucose increased [Not Recovered/Not Resolved]
  - White blood cell count increased [Unknown]
  - Infection [Unknown]
  - Platelet count decreased [Unknown]
  - Ear infection [Not Recovered/Not Resolved]
  - Cardiovascular disorder [Not Recovered/Not Resolved]

NARRATIVE: CASE EVENT DATE: 20140808
